FAERS Safety Report 10742254 (Version 1)
Quarter: 2015Q1

REPORT INFORMATION
  Report Type: Spontaneous
  Country: US (occurrence: None)
  Receive Date: 20150123
  Receipt Date: 20150123
  Transmission Date: 20150721
  Serious: Yes (Life-Threatening, Disabling, Other)
  Sender: FDA-Public Use
  Company Number: None

PATIENT
  Age: 80 Year
  Sex: Female
  Weight: 52.62 kg

DRUGS (1)
  1. LEVAQUIN [Suspect]
     Active Substance: LEVOFLOXACIN
     Indication: PNEUMONIA
     Route: 048
     Dates: start: 20141130, end: 20141214

REACTIONS (6)
  - Confusional state [None]
  - Urinary incontinence [None]
  - Psychotic behaviour [None]
  - Memory impairment [None]
  - Faecal incontinence [None]
  - Activities of daily living impaired [None]
